FAERS Safety Report 7097364-X (Version None)
Quarter: 2010Q4

REPORT INFORMATION
  Report Type: 
  Country: None (occurrence: None)
  Receive Date: 20101111
  Receipt Date: 20101108
  Transmission Date: 20110411
  Serious: Yes (Death, Hospitalization)
  Sender: FDA-Public Use
  Company Number: IL-TEVA-254666ISR

PATIENT
  Age: 58 Year
  Sex: Male

DRUGS (1)
  1. NAPROXEN [Suspect]
     Indication: OSTEOARTHRITIS

REACTIONS (2)
  - GASTROINTESTINAL HAEMORRHAGE [None]
  - LEUKOCYTOCLASTIC VASCULITIS [None]
